FAERS Safety Report 7532261-4 (Version None)
Quarter: 2011Q2

REPORT INFORMATION
  Report Type: 
  Country: None (occurrence: None)
  Receive Date: 20110608
  Receipt Date: 20100527
  Transmission Date: 20111010
  Serious: No
  Sender: FDA-Public Use
  Company Number: US-TEVA-234748USA

PATIENT
  Sex: Female

DRUGS (1)
  1. ENJUVIA [Suspect]
     Dosage: 0.625 MG

REACTIONS (2)
  - BREAST PAIN [None]
  - BREAST TENDERNESS [None]
